FAERS Safety Report 18766831 (Version 1)
Quarter: 2021Q1

REPORT INFORMATION
  Report Type: Spontaneous
  Country: US (occurrence: US)
  Receive Date: 20210120
  Receipt Date: 20210120
  Transmission Date: 20210419
  Serious: No
  Sender: FDA-Public Use
  Company Number: None

PATIENT
  Sex: Female

DRUGS (7)
  1. EZETIMBEE [Concomitant]
  2. HIZENTRA [Suspect]
     Active Substance: HUMAN IMMUNOGLOBULIN G
     Indication: FIBROMYALGIA
     Dosage: ?          OTHER FREQUENCY:EVERY 7 DAYS;OTHER ROUTE:INFUSE?
     Dates: start: 20190507
  3. LORAZEPAM. [Concomitant]
     Active Substance: LORAZEPAM
  4. MUPROXIN [Concomitant]
  5. ATENOLOL. [Concomitant]
     Active Substance: ATENOLOL
  6. ARITITHROMYCIN [Concomitant]
  7. LOSARTAN POT [Concomitant]
     Active Substance: LOSARTAN POTASSIUM

REACTIONS (1)
  - Headache [None]
